FAERS Safety Report 8457115-0 (Version None)
Quarter: 2012Q2

REPORT INFORMATION
  Report Type: 
  Country: None (occurrence: None)
  Receive Date: 20120621
  Receipt Date: 20120612
  Transmission Date: 20120825
  Serious: Yes (Death, Hospitalization, Other)
  Sender: FDA-Public Use
  Company Number: ZA-B.I. PHARMACEUTICALS,INC./RIDGEFIELD-2012-EU-03124GD

PATIENT
  Age: 28 Year
  Sex: Female

DRUGS (5)
  1. TENOFOVIR DISOPROXIL FUMARATE [Concomitant]
     Indication: HIV TEST POSITIVE
  2. MULTI-VITAMINS [Concomitant]
  3. IRON [Concomitant]
     Route: 048
  4. NEVIRAPINE [Suspect]
     Indication: HIV TEST POSITIVE
     Dosage: 200 MG
  5. LAMIVUDINE [Concomitant]
     Indication: HIV TEST POSITIVE

REACTIONS (6)
  - ENCEPHALOPATHY [None]
  - HEPATIC FAILURE [None]
  - PYREXIA [None]
  - DRUG-INDUCED LIVER INJURY [None]
  - DRUG ERUPTION [None]
  - STILLBIRTH [None]
